FAERS Safety Report 5101151-9 (Version None)
Quarter: 2006Q3

REPORT INFORMATION
  Report Type: 
  Country: None (occurrence: None)
  Receive Date: 20060906
  Receipt Date: 20060825
  Transmission Date: 20061208
  Serious: Yes (Other)
  Sender: FDA-Public Use
  Company Number: 2006104981

PATIENT
  Age: 52 Year
  Sex: Male

DRUGS (2)
  1. FELDENE [Suspect]
     Indication: PHARYNGOLARYNGEAL PAIN
     Dosage: 20 MG (20 MG, 1 IN 1 D), ORAL
     Route: 048
     Dates: start: 20060201, end: 20060818
  2. ENALAPRIL [Concomitant]

REACTIONS (7)
  - BLISTER [None]
  - EAR DISORDER [None]
  - GENITAL LESION [None]
  - ORAL SOFT TISSUE DISORDER [None]
  - RASH [None]
  - SKIN DISCOLOURATION [None]
  - SKIN LESION [None]
